FAERS Safety Report 5452364-8 (Version None)
Quarter: 2007Q3

REPORT INFORMATION
  Report Type: 
  Country: None (occurrence: None)
  Receive Date: 20070914
  Receipt Date: 20070912
  Transmission Date: 20080115
  Serious: Yes (Hospitalization)
  Sender: FDA-Public Use
  Company Number: HQWYE121812SEP07

PATIENT
  Age: 89 Year
  Sex: Female

DRUGS (9)
  1. AMIODARONE HCL [Suspect]
     Indication: ATRIAL FIBRILLATION
     Route: 048
     Dates: start: 20070725, end: 20070813
  2. BENDROFLUMETHIAZIDE [Concomitant]
     Route: 065
  3. CO-CODAMOL [Concomitant]
     Dosage: ^2DF^ 8/1 DAYS
     Route: 065
  4. SIMVASTATIN [Concomitant]
     Route: 065
  5. ISOSORBIDE MONONITRATE [Concomitant]
     Route: 065
  6. LOSARTAN POSTASSIUM [Concomitant]
     Route: 065
  7. NICORANDIL [Concomitant]
     Route: 065
  8. ASPIRIN [Concomitant]
     Route: 065
  9. GLYCERYL TRINITRATE [Concomitant]
     Dosage: DOSE AND FREQUENCY NOT SPECIFIED
     Route: 065

REACTIONS (6)
  - EYE DISCHARGE [None]
  - MUCOUS MEMBRANE DISORDER [None]
  - PALLOR [None]
  - PYREXIA [None]
  - RASH GENERALISED [None]
  - VOMITING [None]
